FAERS Safety Report 10034699 (Version 1)
Quarter: 2014Q1

REPORT INFORMATION
  Report Type: Spontaneous
  Country: US (occurrence: None)
  Receive Date: 20140306
  Receipt Date: 20140306
  Transmission Date: 20141002
  Serious: Yes (Life-Threatening, Hospitalization, Disabling, Other)
  Sender: FDA-Public Use
  Company Number: 163-21880-13073942

PATIENT
  Age: 60 Year
  Sex: Male

DRUGS (11)
  1. REVLIMID (LENALIDOMIDE) (25 MILLIGRAM CAPSULES) [Suspect]
     Indication: PLASMA CELL LEUKAEMIA
     Dosage: 14 IN 14 DAYS
     Route: 048
     Dates: start: 20130626, end: 20130707
  2. VELCADE (BORTEZOMIB) [Concomitant]
  3. NSAIDS (OTHER THERAPEUTIC PRODUCTS) [Concomitant]
  4. ANTIBIOTICS [Concomitant]
  5. ZOFRAN (ONDANSETRON HYDROCHLORIDE) [Concomitant]
  6. TRAZODONE [Concomitant]
  7. RESTORIL (TEMAZEPAM) [Concomitant]
  8. TYLENOL (PARACETAMOL) [Concomitant]
  9. FLUID (OTHER THERAPEUTIC PRODUCTS) [Concomitant]
  10. ANTIHISTAMINES [Concomitant]
  11. PREDNISONE [Concomitant]

REACTIONS (3)
  - Sepsis [None]
  - Renal failure [None]
  - Pancytopenia [None]
